FAERS Safety Report 13793287 (Version 1)
Quarter: 2017Q3

REPORT INFORMATION
  Report Type: Spontaneous
  Country: US (occurrence: US)
  Receive Date: 20170726
  Receipt Date: 20170726
  Transmission Date: 20171127
  Serious: No
  Sender: FDA-Public Use
  Company Number: US-MYLANLABS-2016M1033948

PATIENT
  Sex: Male

DRUGS (2)
  1. CLONIDINE HYDROCHLORIDE TABLETS, USP [Suspect]
     Active Substance: CLONIDINE HYDROCHLORIDE
     Indication: INSOMNIA
     Dosage: 0.1 MG, QHS
     Route: 048
     Dates: start: 2015, end: 2015
  2. CLONIDINE HYDROCHLORIDE TABLETS, USP [Suspect]
     Active Substance: CLONIDINE HYDROCHLORIDE
     Indication: OFF LABEL USE

REACTIONS (1)
  - Drug ineffective for unapproved indication [Recovered/Resolved]

NARRATIVE: CASE EVENT DATE: 2015
